FAERS Safety Report 16892459 (Version 5)
Quarter: 2020Q1

REPORT INFORMATION
  Report Type: Report from Study
  Country: US (occurrence: US)
  Receive Date: 20191007
  Receipt Date: 20200303
  Transmission Date: 20200409
  Serious: Yes (Hospitalization, Other)
  Sender: FDA-Public Use
  Company Number: US-GILEAD-2019-0431767

PATIENT
  Age: 60 Year
  Sex: Male

DRUGS (4)
  1. AMBRISENTAN [Suspect]
     Active Substance: AMBRISENTAN
     Dosage: 10 MG, QD
     Route: 048
     Dates: start: 20190719
  2. AMBRISENTAN [Suspect]
     Active Substance: AMBRISENTAN
     Indication: PULMONARY ARTERIAL HYPERTENSION
     Dosage: 5 MG, QD
     Route: 048
     Dates: start: 20100203
  3. SILDENAFIL. [Concomitant]
     Active Substance: SILDENAFIL
  4. XARELTO [Concomitant]
     Active Substance: RIVAROXABAN

REACTIONS (8)
  - Dyspnoea [Recovered/Resolved]
  - Thrombosis [Unknown]
  - Peripheral swelling [Not Recovered/Not Resolved]
  - Epistaxis [Unknown]
  - Fluid overload [Recovered/Resolved]
  - Cellulitis [Recovered/Resolved]
  - Pulmonary hypertension [Unknown]
  - Right ventricular failure [Unknown]

NARRATIVE: CASE EVENT DATE: 20190921
